FAERS Safety Report 5737053-4 (Version None)
Quarter: 2008Q2

REPORT INFORMATION
  Report Type: 
  Country: None (occurrence: None)
  Receive Date: 20080513
  Receipt Date: 20080513
  Transmission Date: 20081010
  Serious: Yes (Hospitalization)
  Sender: FDA-Public Use
  Company Number: None

PATIENT
  Sex: Male

DRUGS (10)
  1. DIGOXIN [Suspect]
     Dosage: ONE DAILY PO
     Route: 048
     Dates: start: 20071106, end: 20080517
  2. PLAVIX [Concomitant]
  3. ISOSORBIDE MONO ER TABS [Concomitant]
  4. WELCHOL TABS [Concomitant]
  5. CRESTOR [Concomitant]
  6. TRICOR [Concomitant]
  7. QUINAPRIL [Concomitant]
  8. RANEXA [Concomitant]
  9. LOVAZA [Concomitant]
  10. CARVEDILOL [Concomitant]

REACTIONS (3)
  - NAUSEA [None]
  - PHARMACEUTICAL PRODUCT COMPLAINT [None]
  - THERAPEUTIC AGENT TOXICITY [None]
